FAERS Safety Report 8116644-X (Version None)
Quarter: 2012Q1

REPORT INFORMATION
  Report Type: 
  Country: None (occurrence: None)
  Receive Date: 20120206
  Receipt Date: 20120124
  Transmission Date: 20120608
  Serious: Yes (Hospitalization, Other)
  Sender: FDA-Public Use
  Company Number: PHHY2010JP54253

PATIENT
  Age: 74 Year
  Sex: Male

DRUGS (6)
  1. GLEEVEC [Suspect]
     Indication: CHRONIC MYELOID LEUKAEMIA
     Dosage: 300 MG, DAILY
     Route: 048
     Dates: start: 20061005, end: 20061201
  2. GLEEVEC [Suspect]
     Dosage: 200 MG, DAILY
     Route: 048
  3. GLEEVEC [Suspect]
     Dosage: 200 MG, DAILY
     Route: 048
     Dates: start: 20070201
  4. GLEEVEC [Suspect]
     Dosage: 400 MG, DAILY
     Route: 048
     Dates: start: 20070601, end: 20090626
  5. GLEEVEC [Suspect]
     Dosage: 100 MG, DAILY
     Route: 048
     Dates: start: 20070101
  6. GLEEVEC [Suspect]
     Dosage: 300 MG, DAILY
     Route: 048
     Dates: start: 20070301

REACTIONS (17)
  - WHEEZING [None]
  - FLUID RETENTION [None]
  - ASTHENIA [None]
  - PLEURAL EFFUSION [None]
  - WHITE BLOOD CELL COUNT DECREASED [None]
  - COUGH [None]
  - ASCITES [None]
  - RASH [None]
  - DECREASED APPETITE [None]
  - GASTROINTESTINAL MUCOSAL DISORDER [None]
  - ABDOMINAL DISTENSION [None]
  - GASTROINTESTINAL HAEMORRHAGE [None]
  - HEPATIC CIRRHOSIS [None]
  - OCCULT BLOOD POSITIVE [None]
  - URINE OUTPUT INCREASED [None]
  - PRURITUS [None]
  - OEDEMA PERIPHERAL [None]
